FAERS Safety Report 21853335 (Version 2)
Quarter: 2023Q1

REPORT INFORMATION
  Report Type: Spontaneous
  Country: IL (occurrence: IL)
  Receive Date: 20230112
  Receipt Date: 20230126
  Transmission Date: 20230418
  Serious: Yes (Other)
  Sender: FDA-Public Use
  Company Number: IL-002147023-NVSC2023IL005932

PATIENT
  Age: 65 Year
  Sex: Female

DRUGS (1)
  1. FEMARA [Suspect]
     Active Substance: LETROZOLE
     Indication: Breast cancer
     Dosage: UNK
     Route: 048
     Dates: start: 202209

REACTIONS (5)
  - Neuropathy peripheral [Not Recovered/Not Resolved]
  - Vision blurred [Unknown]
  - Arthralgia [Unknown]
  - Myalgia [Unknown]
  - Dizziness [Unknown]
